FAERS Safety Report 5537855-3 (Version None)
Quarter: 2007Q4

REPORT INFORMATION
  Report Type: 
  Country: None (occurrence: None)
  Receive Date: 20071207
  Receipt Date: 20071126
  Transmission Date: 20080405
  Serious: Yes (Other)
  Sender: FDA-Public Use
  Company Number: US-PFIZER INC-2007090800

PATIENT
  Sex: Female
  Weight: 51.818 kg

DRUGS (5)
  1. NEURONTIN [Suspect]
     Indication: NEUROPATHY
     Dosage: FREQ:DAILY
     Dates: start: 20010101, end: 20070101
  2. LYRICA [Suspect]
     Indication: NEUROPATHY PERIPHERAL
     Route: 048
  3. ALL OTHER THERAPEUTIC PRODUCTS [Suspect]
  4. UNIVASC [Concomitant]
  5. TOPROL-XL [Concomitant]

REACTIONS (8)
  - ACTIVITIES OF DAILY LIVING IMPAIRED [None]
  - CEREBROVASCULAR ACCIDENT [None]
  - DIZZINESS [None]
  - DRUG INEFFECTIVE [None]
  - FEELING ABNORMAL [None]
  - HYPERSENSITIVITY [None]
  - INTENTIONAL DRUG MISUSE [None]
  - PALPITATIONS [None]
